FAERS Safety Report 25521506 (Version 3)
Quarter: 2025Q3

REPORT INFORMATION
  Report Type: Report from Study
  Country: US (occurrence: US)
  Receive Date: 20250706
  Receipt Date: 20250825
  Transmission Date: 20251020
  Serious: No
  Sender: DR REDDYS
  Company Number: US-DRL-USA-USA/2025/06/009102

PATIENT
  Sex: Male
  Weight: 73.62 kg

DRUGS (2)
  1. JAVYGTOR [Suspect]
     Active Substance: SAPROPTERIN DIHYDROCHLORIDE
     Indication: Phenylketonuria
     Dosage: TAKE ONE 500 MG POWDER PACKET ALONG WITH ONE 100 MG TABLET BY MOUTH ONCE DAILY AS DIRECTED WITH A  M
     Route: 048
  2. JAVYGTOR [Suspect]
     Active Substance: SAPROPTERIN DIHYDROCHLORIDE
     Indication: Phenylketonuria
     Dosage: TAKE ONE 500 MG POWDER PACKET ALONG WITH ONE 100 MG TABLET BY MOUTH ONCE DAILY AS DIRECTED WITH A  M
     Route: 048

REACTIONS (1)
  - Drug ineffective [Unknown]
